APPROVED DRUG PRODUCT: LARIN FE 1/20
Active Ingredient: ETHINYL ESTRADIOL; NORETHINDRONE ACETATE
Strength: 0.02MG;1MG
Dosage Form/Route: TABLET;ORAL-28
Application: A091454 | Product #001 | TE Code: AB
Applicant: NOVAST LABORATORIES LTD
Approved: Aug 26, 2013 | RLD: No | RS: No | Type: RX